FAERS Safety Report 6023706-X (Version None)
Quarter: 2008Q4

REPORT INFORMATION
  Report Type: 
  Country: None (occurrence: None)
  Receive Date: 20081226
  Receipt Date: 20081226
  Transmission Date: 20090506
  Serious: Yes (Other)
  Sender: FDA-Public Use
  Company Number: None

PATIENT
  Age: 46 Year
  Sex: Female
  Weight: 74.8435 kg

DRUGS (1)
  1. NITROFURANTOIN MONOHYDRATE/MACROCRYSTALS [Suspect]
     Indication: URINARY TRACT INFECTION
     Dosage: 1 CAPSULE TWICE PER DAY PO
     Route: 048
     Dates: start: 20081223, end: 20081223

REACTIONS (8)
  - ASTHENIA [None]
  - BONE PAIN [None]
  - COUGH [None]
  - DYSPNOEA [None]
  - MIGRAINE [None]
  - MOVEMENT DISORDER [None]
  - MYALGIA [None]
  - TOOTHACHE [None]
